FAERS Safety Report 25023252 (Version 1)
Quarter: 2025Q1

REPORT INFORMATION
  Report Type: Spontaneous
  Country: FR (occurrence: FR)
  Receive Date: 20250228
  Receipt Date: 20250228
  Transmission Date: 20250408
  Serious: Yes (Hospitalization)
  Sender: RANBAXY
  Company Number: FR-AFSSAPS-NC2024001709

PATIENT
  Age: 38 Year
  Sex: Female
  Weight: 77.6 kg

DRUGS (2)
  1. IBUPROFEN [Suspect]
     Active Substance: IBUPROFEN
     Indication: Palmar-plantar erythrodysaesthesia syndrome
     Route: 048
     Dates: start: 20241122, end: 20241208
  2. XELODA [Suspect]
     Active Substance: CAPECITABINE
     Indication: Triple negative breast cancer
     Dosage: 4300 MILLIGRAM, DAILY
     Route: 048
     Dates: start: 20241113, end: 20241121

REACTIONS (2)
  - Cheilitis [Recovering/Resolving]
  - Mouth ulceration [Recovering/Resolving]

NARRATIVE: CASE EVENT DATE: 20241205
